FAERS Safety Report 11176494 (Version 3)
Quarter: 2015Q3

REPORT INFORMATION
  Report Type: Spontaneous
  Country: JP (occurrence: JP)
  Receive Date: 20150610
  Receipt Date: 20150707
  Transmission Date: 20151125
  Serious: Yes (Death, Other)
  Sender: FDA-Public Use
  Company Number: JP-009507513-1506JPN004221

PATIENT
  Age: 85 Year
  Sex: Female

DRUGS (9)
  1. MICAMLO [Suspect]
     Active Substance: AMLODIPINE BESYLATE\TELMISARTAN
     Indication: HYPERTENSION
     Dosage: DAILY DOSAGE UNKNOWN
     Route: 065
  2. DEPAS [Concomitant]
     Active Substance: ETIZOLAM
     Dosage: UNK
     Route: 065
  3. LENDORMIN [Concomitant]
     Active Substance: BROTIZOLAM
     Route: 065
  4. AMOBAN [Concomitant]
     Active Substance: ZOPICLONE
     Route: 065
  5. DIPHENIDOL HYDROCHLORIDE [Suspect]
     Active Substance: DIPHENIDOL HYDROCHLORIDE
     Indication: DIZZINESS
     Dosage: DAILY DOSAGE UNKNOWN
     Route: 065
  6. EURODIN (ESTAZOLAM) [Concomitant]
     Dosage: DAILY DOSAGE UNKNOWN, TAKEN AS NEEDED
     Route: 048
  7. BETAHISTINE MESYLATE [Suspect]
     Active Substance: BETAHISTINE MESILATE
     Indication: DIZZINESS
     Dosage: DAILY DOSAGE UNKNOWN
     Route: 065
  8. BELSOMRA [Suspect]
     Active Substance: SUVOREXANT
     Indication: INSOMNIA
     Dosage: 15 MG, 1 TABLET DAILY
     Route: 048
     Dates: start: 20150526, end: 20150527
  9. ADETPHOS [Suspect]
     Active Substance: ADENOSINE TRIPHOSPHATE
     Dosage: DAILY DOSAGE UNKNOWN
     Route: 048

REACTIONS (2)
  - Completed suicide [Fatal]
  - Drug ineffective [Unknown]

NARRATIVE: CASE EVENT DATE: 20150529
